FAERS Safety Report 22129373 (Version 1)
Quarter: 2023Q1

REPORT INFORMATION
  Report Type: Other
  Country: CA (occurrence: CA)
  Receive Date: 20230323
  Receipt Date: 20230323
  Transmission Date: 20230417
  Serious: Yes (Hospitalization, Other)
  Sender: FDA-Public Use
  Company Number: CA-ROCHE-2979963

PATIENT
  Age: 34 Year
  Sex: Female

DRUGS (7)
  1. RITUXAN [Suspect]
     Active Substance: RITUXIMAB
     Indication: Glomerulonephritis minimal lesion
     Dosage: RECEIVED RITUXAN OUTSIDE RPAP; DETAILS NOT KNOWN
     Route: 042
     Dates: start: 2015
  2. RITUXAN [Suspect]
     Active Substance: RITUXIMAB
     Dosage: NO PIR ON FILE
     Route: 042
     Dates: start: 20220107, end: 20220107
  3. RUXIENCE [Suspect]
     Active Substance: RITUXIMAB-PVVR
     Indication: Glomerulonephritis minimal lesion
     Route: 042
     Dates: start: 20211208, end: 20211208
  4. CANDESARTAN [Concomitant]
     Active Substance: CANDESARTAN
     Route: 065
  5. LASIX [Concomitant]
     Active Substance: FUROSEMIDE
  6. PREDNISONE [Concomitant]
     Active Substance: PREDNISONE
  7. RIFAMPIN [Concomitant]
     Active Substance: RIFAMPIN

REACTIONS (9)
  - Dyspnoea [Unknown]
  - Insomnia [Unknown]
  - Pericardial effusion [Unknown]
  - Pulmonary oedema [Unknown]
  - Fluid retention [Unknown]
  - Angioedema [Unknown]
  - Ear congestion [Unknown]
  - Nasal congestion [Unknown]
  - Off label use [Unknown]

NARRATIVE: CASE EVENT DATE: 20211201
